FAERS Safety Report 6349265-X (Version None)
Quarter: 2009Q3

REPORT INFORMATION
  Report Type: 
  Country: None (occurrence: None)
  Receive Date: 20090911
  Receipt Date: 20090908
  Transmission Date: 20100115
  Serious: Yes (Hospitalization)
  Sender: FDA-Public Use
  Company Number: A0804077A

PATIENT
  Age: 75 Year
  Sex: Male

DRUGS (8)
  1. ADVAIR HFA [Suspect]
     Indication: ILL-DEFINED DISORDER
     Route: 055
     Dates: start: 20090822
  2. PROMETHAZINE W/ CODEINE [Concomitant]
  3. FUROSEMIDE [Concomitant]
  4. COUMADIN [Concomitant]
  5. FINASTERIDE [Concomitant]
  6. MULTI-VITAMIN [Concomitant]
  7. ASCORBIC ACID [Concomitant]
  8. NUTRITIONAL SUPPLEMENT [Concomitant]

REACTIONS (7)
  - ABDOMINAL DISCOMFORT [None]
  - ABDOMINAL DISTENSION [None]
  - DECREASED APPETITE [None]
  - DIZZINESS [None]
  - FATIGUE [None]
  - NAUSEA [None]
  - PULMONARY OEDEMA [None]
